FAERS Safety Report 21856238 (Version 2)
Quarter: 2023Q1

REPORT INFORMATION
  Report Type: Spontaneous
  Country: US (occurrence: US)
  Receive Date: 20230112
  Receipt Date: 20230215
  Transmission Date: 20230418
  Serious: No
  Sender: FDA-Public Use
  Company Number: US-Teikoku Pharma USA-TPU2022-01006

PATIENT
  Sex: Male

DRUGS (1)
  1. LIDOCAINE PATCH [Suspect]
     Active Substance: LIDOCAINE
     Indication: Myalgia
     Dosage: 5 TO 6 PATCHES A DAY
     Route: 061

REACTIONS (2)
  - Incorrect dose administered [Not Recovered/Not Resolved]
  - Product availability issue [Not Recovered/Not Resolved]
